FAERS Safety Report 5014922-4 (Version None)
Quarter: 2006Q2

REPORT INFORMATION
  Report Type: 
  Country: None (occurrence: None)
  Receive Date: 20060531
  Receipt Date: 20060519
  Transmission Date: 20061013
  Serious: Yes (Disabling)
  Sender: FDA-Public Use
  Company Number: ES-ROCHE-448667

PATIENT
  Age: 20 Year
  Sex: Female

DRUGS (1)
  1. ROACCUTANE [Suspect]
     Route: 048
     Dates: start: 20060215, end: 20060515

REACTIONS (1)
  - VITREOUS HAEMORRHAGE [None]
